FAERS Safety Report 25953820 (Version 1)
Quarter: 2025Q4

REPORT INFORMATION
  Report Type: Spontaneous
  Country: US (occurrence: US)
  Receive Date: 20251023
  Receipt Date: 20251023
  Transmission Date: 20260118
  Serious: No
  Sender: DR REDDYS
  Company Number: US-DRL-USA-USA/2025/10/015524

PATIENT
  Age: 84 Year
  Sex: Female
  Weight: 78.925 kg

DRUGS (4)
  1. CLONIDINE TRANSDERMAL SYSTEM USP, 0.2 MG/DAY [Suspect]
     Active Substance: CLONIDINE
     Indication: Blood pressure abnormal
     Dosage: ONE PATCH WEEKLY,
     Route: 062
     Dates: start: 20250828
  2. CLONIDINE TRANSDERMAL SYSTEM USP, 0.2 MG/DAY [Suspect]
     Active Substance: CLONIDINE
     Dosage: ONE PATCH WEEKLY,
     Route: 062
  3. VALSARTAN [Concomitant]
     Active Substance: VALSARTAN
     Indication: Product used for unknown indication
     Dosage: VALSARTAN 160 MG
  4. HYDRALAZINE HYDROCHLORIDE [Concomitant]
     Active Substance: HYDRALAZINE HYDROCHLORIDE
     Indication: Product used for unknown indication
     Dosage: VALSARTAN 160 MG

REACTIONS (2)
  - Wrong technique in product usage process [Unknown]
  - Product dose omission issue [Unknown]

NARRATIVE: CASE EVENT DATE: 20250828
